FAERS Safety Report 8991880 (Version 1)
Quarter: 2012Q4

REPORT INFORMATION
  Report Type: Report from Study
  Country: CA (occurrence: CA)
  Receive Date: 20121231
  Receipt Date: 20121231
  Transmission Date: 20130627
  Serious: Yes (Disabling, Other)
  Sender: FDA-Public Use
  Company Number: CA-ROCHE-1167404

PATIENT
  Sex: Female
  Weight: 60.06 kg

DRUGS (1)
  1. OMALIZUMAB [Suspect]
     Indication: ASTHMA
     Dosage: 300 mg, UNK
     Route: 058
     Dates: start: 20061011

REACTIONS (12)
  - Labyrinthitis [Recovering/Resolving]
  - Rhinorrhoea [Unknown]
  - Pain in extremity [Unknown]
  - Periarthritis [Unknown]
  - Sneezing [Unknown]
  - Dyspnoea [Unknown]
  - Nasal discomfort [Unknown]
  - Epistaxis [Unknown]
  - Skin fissures [Unknown]
  - Sinusitis [Unknown]
  - Rhinorrhoea [Unknown]
  - Headache [Unknown]
